FAERS Safety Report 4518873-0 (Version None)
Quarter: 2004Q4

REPORT INFORMATION
  Report Type: 
  Country: None (occurrence: None)
  Receive Date: 20041206
  Receipt Date: 20041124
  Transmission Date: 20050328
  Serious: Yes (Other)
  Sender: FDA-Public Use
  Company Number: BR-BRISTOL-MYERS SQUIBB COMPANY-12776985

PATIENT
  Sex: Female

DRUGS (1)
  1. BUSPAR [Suspect]
     Route: 048

REACTIONS (3)
  - ABDOMINAL PAIN [None]
  - OVERDOSE [None]
  - SOMNOLENCE [None]
